FAERS Safety Report 5506660-6 (Version None)
Quarter: 2007Q4

REPORT INFORMATION
  Report Type: 
  Country: None (occurrence: None)
  Receive Date: 20071105
  Receipt Date: 20071022
  Transmission Date: 20080405
  Serious: Yes (Hospitalization)
  Sender: FDA-Public Use
  Company Number: US-RANBAXY-2007RR-10730

PATIENT

DRUGS (12)
  1. IBUPROFEN [Suspect]
     Indication: CHILLS
     Dosage: 400 MG, QID
     Route: 048
  2. IBUPROFEN [Suspect]
     Indication: MALAISE
  3. ACETAMINOPHEN/PSEUDOEPHEDRINE HCI/DEXTROMETHORPHAN HBR [Concomitant]
     Indication: ASTHENIA
  4. ACETAMINOPHEN/PSEUDOEPHEDRINE HCI/DEXTROMETHORPHAN HBR [Concomitant]
     Indication: NAUSEA
  5. TRIMETHOBENZAMIDE [Concomitant]
     Dosage: 100 MG, UNK
     Route: 030
  6. CO-TRIMOXAZOLE [Concomitant]
     Dosage: UNK
  7. HYOSCYAMINE [Concomitant]
     Indication: ABDOMINAL PAIN
     Dosage: 0.125 MG, PRN
  8. PROCHLORPERAZINE [Concomitant]
     Indication: NAUSEA
     Dosage: UNK
  9. RANITIDINE [Concomitant]
     Dosage: 50 MG, UNK
     Route: 042
  10. CEFTRIAXONE [Concomitant]
     Dosage: 1 G, UNK
     Route: 042
  11. ONDANSETRON [Concomitant]
     Dosage: 4 MG, UNK
     Route: 042
  12. METHYLPREDNISOLONE [Concomitant]
     Dosage: 1 G, UNK
     Route: 042

REACTIONS (1)
  - RENAL TUBULAR NECROSIS [None]
